FAERS Safety Report 7706372-4 (Version None)
Quarter: 2011Q3

REPORT INFORMATION
  Report Type: 
  Country: None (occurrence: None)
  Receive Date: 20110824
  Receipt Date: 20110819
  Transmission Date: 20111222
  Serious: Yes (Other)
  Sender: FDA-Public Use
  Company Number: DE-PFIZER INC-2011191619

PATIENT
  Sex: Female
  Weight: 83 kg

DRUGS (1)
  1. LYRICA [Suspect]
     Indication: PAIN
     Dosage: 1-2-1 DAILY
     Route: 048
     Dates: start: 20101101

REACTIONS (1)
  - OCULAR HYPERTENSION [None]
